FAERS Safety Report 9851447 (Version 4)
Quarter: 2014Q2

REPORT INFORMATION
  Report Type: Spontaneous
  Country: US (occurrence: US)
  Receive Date: 20140129
  Receipt Date: 20140409
  Transmission Date: 20141212
  Serious: Yes (Other)
  Sender: FDA-Public Use
  Company Number: US-BIOGENIDEC-2014BI006690

PATIENT
  Age: 42 Year
  Sex: Female

DRUGS (9)
  1. TYSABRI [Suspect]
     Indication: MULTIPLE SCLEROSIS
     Route: 042
     Dates: start: 20070523, end: 20080108
  2. TYSABRI [Suspect]
     Indication: MULTIPLE SCLEROSIS
     Route: 042
     Dates: start: 20131205
  3. ACETAMINOPHEN [Concomitant]
     Route: 048
  4. AMBIEN [Concomitant]
     Route: 048
  5. LORATADINE [Concomitant]
     Route: 048
  6. NITROFURANTOIN [Concomitant]
  7. VALTREX [Concomitant]
     Route: 048
  8. VITAMIN D [Concomitant]
  9. XANAX [Concomitant]

REACTIONS (1)
  - Malignant melanoma [Not Recovered/Not Resolved]
